FAERS Safety Report 9766920 (Version 1)
Quarter: 2013Q4

REPORT INFORMATION
  Report Type: Spontaneous
  Country: US (occurrence: US)
  Receive Date: 20131217
  Receipt Date: 20131217
  Transmission Date: 20140711
  Serious: No
  Sender: FDA-Public Use
  Company Number: US-BIOGENIDEC-2013BI119582

PATIENT
  Age: 55 Year
  Sex: 0

DRUGS (12)
  1. TECFIDERA [Suspect]
     Indication: MULTIPLE SCLEROSIS
     Route: 048
     Dates: start: 20130718
  2. LYRICA [Concomitant]
  3. LOPERAMIDE [Concomitant]
  4. PRIMIIDONE [Concomitant]
  5. BACLOFEN [Concomitant]
  6. OXYBUTYNIN [Concomitant]
  7. ALENDRONATE [Concomitant]
  8. LASIX [Concomitant]
  9. PULMICORT [Concomitant]
  10. ATROVENT [Concomitant]
  11. PENTOXIFYL [Concomitant]
  12. FISH OIL [Concomitant]

REACTIONS (2)
  - Pain in extremity [Not Recovered/Not Resolved]
  - Weight increased [Unknown]
